FAERS Safety Report 15338069 (Version 1)
Quarter: 2018Q3

REPORT INFORMATION
  Report Type: Spontaneous
  Country: US (occurrence: US)
  Receive Date: 20180827
  Receipt Date: 20180827
  Transmission Date: 20181010
  Serious: No
  Sender: FDA-Public Use
  Company Number: None

PATIENT
  Age: 44 Year
  Sex: Female
  Weight: 63.9 kg

DRUGS (3)
  1. VENLAFAXINE [Concomitant]
     Active Substance: VENLAFAXINE HYDROCHLORIDE
  2. CVS HEALTH TRIPLE ANTIBIOTIC WITH PAIN RELIEF [Suspect]
     Active Substance: BACITRACIN ZINC\NEOMYCIN SULFATE\POLYMYXIN B SULFATE\PRAMOXINE HYDROCHLORIDE
     Indication: RASH
     Route: 061
     Dates: start: 20180822, end: 20180824
  3. DAILY ESSENTIAL BIOAVAILABLE [Concomitant]

REACTIONS (5)
  - Drug hypersensitivity [None]
  - Pruritus [None]
  - Dry skin [None]
  - Urticaria [None]
  - Application site reaction [None]

NARRATIVE: CASE EVENT DATE: 20180823
